FAERS Safety Report 22173922 (Version 4)
Quarter: 2023Q2

REPORT INFORMATION
  Report Type: Report from Study
  Country: JP (occurrence: JP)
  Receive Date: 20230404
  Receipt Date: 20230630
  Transmission Date: 20230722
  Serious: Yes (Other)
  Sender: FDA-Public Use
  Company Number: JP-JNJFOC-20221129227

PATIENT
  Age: 64 Year
  Sex: Male

DRUGS (4)
  1. ERLEADA [Suspect]
     Active Substance: APALUTAMIDE
     Indication: Prostate cancer
     Dosage: IN THE EVENING
     Route: 048
     Dates: start: 20221102, end: 20221102
  2. ERLEADA [Suspect]
     Active Substance: APALUTAMIDE
     Dosage: IN THE MORNING
     Route: 048
     Dates: start: 20221103, end: 20221103
  3. ERLEADA [Suspect]
     Active Substance: APALUTAMIDE
     Route: 048
     Dates: start: 20221104, end: 20221205
  4. ERLEADA [Suspect]
     Active Substance: APALUTAMIDE
     Dosage: IN THE MORNING
     Route: 048
     Dates: start: 20230105

REACTIONS (17)
  - Haematochezia [Not Recovered/Not Resolved]
  - Gingival swelling [Recovering/Resolving]
  - Middle insomnia [Recovered/Resolved]
  - Initial insomnia [Recovered/Resolved]
  - Poor quality sleep [Recovered/Resolved]
  - Thermohypoaesthesia [Recovered/Resolved]
  - Pollakiuria [Recovered/Resolved]
  - Sleep deficit [Recovered/Resolved]
  - Urticaria [Recovered/Resolved]
  - Pruritus [Recovered/Resolved]
  - Sputum retention [Not Recovered/Not Resolved]
  - Erythema [Recovered/Resolved]
  - Rash [Recovered/Resolved]
  - Dry skin [Recovering/Resolving]
  - Hepatic function abnormal [Not Recovered/Not Resolved]
  - Blood test abnormal [Not Recovered/Not Resolved]
  - Haemorrhoids [Not Recovered/Not Resolved]

NARRATIVE: CASE EVENT DATE: 20221101
